FAERS Safety Report 13515333 (Version 2)
Quarter: 2017Q2

REPORT INFORMATION
  Report Type: Spontaneous
  Country: US (occurrence: US)
  Receive Date: 20170504
  Receipt Date: 20170605
  Transmission Date: 20170830
  Serious: Yes (Death, Hospitalization)
  Sender: FDA-Public Use
  Company Number: US-PFIZER INC-2017194800

PATIENT
  Age: 84 Year
  Sex: Female

DRUGS (1)
  1. IBRANCE [Suspect]
     Active Substance: PALBOCICLIB
     Indication: METASTASES TO LIVER
     Dosage: UNK
     Dates: start: 2017

REACTIONS (1)
  - Arterial disorder [Fatal]
